FAERS Safety Report 7830047-4 (Version None)
Quarter: 2011Q4

REPORT INFORMATION
  Report Type: 
  Country: None (occurrence: None)
  Receive Date: 20111021
  Receipt Date: 20111013
  Transmission Date: 20120403
  Serious: Yes (Hospitalization)
  Sender: FDA-Public Use
  Company Number: CN-ASTELLAS-2011US006100

PATIENT
  Age: 43 Year
  Sex: Female
  Weight: 53 kg

DRUGS (2)
  1. ERLOTINIB HYDROCHLORIDE [Suspect]
     Indication: LUNG NEOPLASM MALIGNANT
     Dosage: 150 MG, UID/QD
     Route: 048
     Dates: start: 20110214
  2. OXYCONTIN [Concomitant]
     Indication: PAIN
     Dosage: 10 MG, UNKNOWN/D
     Route: 042
     Dates: start: 20101101

REACTIONS (2)
  - EPILEPSY [None]
  - COMA [None]
